FAERS Safety Report 8991302 (Version 2)
Quarter: 2013Q1

REPORT INFORMATION
  Report Type: Report from Study
  Country: NL (occurrence: NL)
  Receive Date: 20121231
  Receipt Date: 20130301
  Transmission Date: 20140127
  Serious: Yes (Other)
  Sender: FDA-Public Use
  Company Number: NL-ROCHE-1172644

PATIENT
  Age: 68 Year
  Sex: Male

DRUGS (9)
  1. BEVACIZUMAB [Suspect]
     Indication: NON-SMALL CELL LUNG CANCER
     Dosage: LAST DOSE PRIOE TO SAE : 27/SEP/2012
     Route: 042
     Dates: start: 20111027, end: 20121018
  2. PACLITAXEL [Suspect]
     Indication: NON-SMALL CELL LUNG CANCER
     Dosage: LAST DOSE PRIOE TO SAE : 12/JAN/2012
     Route: 042
     Dates: start: 20111027, end: 20121018
  3. CARBOPLATIN [Suspect]
     Indication: NON-SMALL CELL LUNG CANCER
     Dosage: LAST DOSE PRIOE TO SAE : 12/JAN/2012
     Route: 042
     Dates: start: 20111027, end: 20121018
  4. ERLOTINIB [Suspect]
     Indication: NON-SMALL CELL LUNG CANCER
     Route: 065
     Dates: start: 20121029
  5. MINOCYCLINE [Concomitant]
     Route: 065
     Dates: start: 20121105
  6. PARACETAMOL [Concomitant]
  7. MOVICOLON [Concomitant]
  8. ZOMETA [Concomitant]
  9. CALCICHEW [Concomitant]

REACTIONS (2)
  - Local swelling [Not Recovered/Not Resolved]
  - Oedema peripheral [Not Recovered/Not Resolved]
